FAERS Safety Report 11308371 (Version 4)
Quarter: 2015Q4

REPORT INFORMATION
  Report Type: Spontaneous
  Country: JP (occurrence: JP)
  Receive Date: 20150724
  Receipt Date: 20151030
  Transmission Date: 20160304
  Serious: Yes (Hospitalization, Disabling, Congenital Anomaly, Other)
  Sender: FDA-Public Use
  Company Number: PHJP2015JP012061

PATIENT
  Age: 4 Year
  Sex: Female
  Weight: 23 kg

DRUGS (3)
  1. TEGRETOL [Suspect]
     Active Substance: CARBAMAZEPINE
     Indication: EPILEPSY
     Dosage: 75 MG, BID
     Route: 048
     Dates: start: 20121114, end: 20121121
  2. TEGRETOL [Suspect]
     Active Substance: CARBAMAZEPINE
     Indication: PARTIAL SEIZURES
     Dosage: 150 MG, BID
     Route: 048
     Dates: start: 20121121, end: 20121205
  3. TEGRETOL [Suspect]
     Active Substance: CARBAMAZEPINE
     Dosage: 80 MG, UNK
     Route: 048

REACTIONS (6)
  - Hyperphosphataemia [Not Recovered/Not Resolved]
  - Deafness neurosensory [Unknown]
  - Primary hypoparathyroidism [Not Recovered/Not Resolved]
  - Hypocalcaemia [Recovered/Resolved]
  - Congenital cystic kidney disease [Unknown]
  - Epilepsy [Unknown]

NARRATIVE: CASE EVENT DATE: 20130305
